FAERS Safety Report 18388738 (Version 1)
Quarter: 2020Q4

REPORT INFORMATION
  Report Type: Report from Study
  Country: NL (occurrence: NL)
  Receive Date: 20201015
  Receipt Date: 20201015
  Transmission Date: 20210114
  Serious: Yes (Hospitalization)
  Sender: FDA-Public Use
  Company Number: NL-MYLANLABS-2020M1086073

PATIENT
  Age: 75 Year
  Sex: Female

DRUGS (9)
  1. COLECALCIFEROL [Concomitant]
     Active Substance: CHOLECALCIFEROL
     Dosage: 50000IE; 1 ST M11C
  2. CREON [Concomitant]
     Active Substance: PANCRELIPASE AMYLASE\PANCRELIPASE LIPASE\PANCRELIPASE PROTEASE
     Dosage: 42 ST 3.1C
  3. ALIROCUMAB [Suspect]
     Active Substance: ALIROCUMAB
     Indication: PRIMARY HYPERCHOLESTEROLAEMIA
     Dosage: 150 MG, QOW
     Route: 058
     Dates: start: 20171002
  4. FLUOXETINE [Suspect]
     Active Substance: FLUOXETINE HYDROCHLORIDE
     Indication: PRODUCT USED FOR UNKNOWN INDICATION
     Dosage: 14 ST 1.1C
  5. METOPROLOLSUCCINAAT [Concomitant]
     Active Substance: METOPROLOL SUCCINATE
     Dosage: 14 ST 1.1T
  6. KALIUMLOSARTAN [Concomitant]
     Dosage: 14 ST 1.1T
  7. CLOPIDOGREL [Concomitant]
     Active Substance: CLOPIDOGREL BISULFATE
     Dosage: 14 ST 1.1T
  8. EZETIMIBE. [Concomitant]
     Active Substance: EZETIMIBE
     Dosage: 7 ST
  9. OXAZEPAM. [Concomitant]
     Active Substance: OXAZEPAM
     Dosage: 14 ST 2.HT

REACTIONS (3)
  - Drug interaction [Unknown]
  - Product dose omission in error [Unknown]
  - Hospitalisation [Unknown]

NARRATIVE: CASE EVENT DATE: 2020
